FAERS Safety Report 5724680-3 (Version None)
Quarter: 2008Q2

REPORT INFORMATION
  Report Type: 
  Country: None (occurrence: None)
  Receive Date: 20080430
  Receipt Date: 20080430
  Transmission Date: 20081010
  Serious: Yes (Other)
  Sender: FDA-Public Use
  Company Number: None

PATIENT
  Age: 74 Year
  Sex: Male
  Weight: 63.5036 kg

DRUGS (1)
  1. DIGITEK    0.25MG [Suspect]
     Indication: CARDIAC DISORDER
     Dosage: 1 TABLET  1 PER DAY PO
     Route: 048
     Dates: start: 20080202, end: 20080428

REACTIONS (2)
  - ASTHENIA [None]
  - NAUSEA [None]
